FAERS Safety Report 24544163 (Version 1)
Quarter: 2024Q4

REPORT INFORMATION
  Report Type: Spontaneous
  Country: US (occurrence: US)
  Receive Date: 20241024
  Receipt Date: 20241024
  Transmission Date: 20250115
  Serious: Yes (Hospitalization)
  Sender: MYLAN
  Company Number: US-MYLANLABS-2024M1095773

PATIENT
  Age: 48 Year
  Sex: Male

DRUGS (1)
  1. FINGOLIMOD [Suspect]
     Active Substance: FINGOLIMOD
     Indication: Multiple sclerosis
     Dosage: 0.5 MILLIGRAM, QD
     Route: 048
     Dates: start: 201501

REACTIONS (4)
  - Lymphopenia [Recovered/Resolved]
  - Histoplasmosis disseminated [Recovered/Resolved]
  - Pulmonary histoplasmosis [Recovered/Resolved]
  - Hypercalcaemia [Recovered/Resolved]
